FAERS Safety Report 4300809-9 (Version None)
Quarter: 2004Q1

REPORT INFORMATION
  Report Type: 
  Country: None (occurrence: None)
  Receive Date: 20040218
  Receipt Date: 20040204
  Transmission Date: 20041129
  Serious: Yes (Hospitalization, Other)
  Sender: FDA-Public Use
  Company Number: USA030946028

PATIENT
  Age: 82 Year
  Sex: Female
  Weight: 46 kg

DRUGS (13)
  1. FORTEO [Suspect]
     Indication: OSTEOPOROSIS
     Dosage: 20 UG/DAY
     Dates: start: 20030401
  2. ACTONEL [Concomitant]
  3. ZOCOR [Concomitant]
  4. PREVACID [Concomitant]
  5. MESTINON [Concomitant]
  6. ARICEPT [Concomitant]
  7. CELEXA [Concomitant]
  8. IRON [Concomitant]
  9. ASPIRIN [Concomitant]
  10. CALCIUM [Concomitant]
  11. MULTI-VITAMIN [Concomitant]
  12. VITAMIN E [Concomitant]
  13. VITAMIN B-12 [Concomitant]

REACTIONS (12)
  - BACK DISORDER [None]
  - CHEST WALL PAIN [None]
  - CONTUSION [None]
  - CONVULSION [None]
  - DEHYDRATION [None]
  - DRUG INEFFECTIVE [None]
  - DYSPEPSIA [None]
  - FALL [None]
  - MYALGIA [None]
  - NAUSEA [None]
  - VOMITING [None]
  - WEIGHT DECREASED [None]
